FAERS Safety Report 10881580 (Version 4)
Quarter: 2015Q3

REPORT INFORMATION
  Report Type: Report from Study
  Country: JP (occurrence: JP)
  Receive Date: 20150303
  Receipt Date: 20150714
  Transmission Date: 20151125
  Serious: Yes (Death, Life-Threatening, Other)
  Sender: FDA-Public Use
  Company Number: JP-009507513-1502JPN011989

PATIENT
  Age: 36 Year
  Sex: Female
  Weight: 39 kg

DRUGS (18)
  1. ZARONTIN [Concomitant]
     Active Substance: ETHOSUXIMIDE
     Dosage: DAILY DOSAGE UNKNOWN, FORMULATION: POR
     Route: 048
  2. MIYA-BM [Concomitant]
     Active Substance: CLOSTRIDIUM BUTYRICUM SPORES STRAIN M-55
     Dosage: DAILY DOSAGE UNKNOWN, FORMULATION: POR
     Route: 048
     Dates: start: 20111019
  3. PRIMPERAN [Concomitant]
     Active Substance: METOCLOPRAMIDE HYDROCHLORIDE
     Dosage: DAILY DOSAGE UNKNOWN
     Route: 042
     Dates: start: 20121105, end: 20121109
  4. PHENOBAL [Concomitant]
     Active Substance: PHENOBARBITAL
     Dosage: DAILY DOSAGE UNKNOWN, FORMULATION: POR
     Route: 048
  5. PRIMPERAN [Concomitant]
     Active Substance: METOCLOPRAMIDE HYDROCHLORIDE
     Indication: PROPHYLAXIS
     Dosage: DAILY DOSAGE UNKNOWN
     Route: 042
     Dates: start: 20120716, end: 20120720
  6. TEMOZOLOMIDE. [Suspect]
     Active Substance: TEMOZOLOMIDE
     Indication: GLIOBLASTOMA MULTIFORME
     Dosage: 150 MG/M2, QD, FIRST CYCLE, CONCENTRATION 100 MG
     Route: 041
     Dates: start: 20120716, end: 20120720
  7. TEMOZOLOMIDE. [Suspect]
     Active Substance: TEMOZOLOMIDE
     Dosage: 200 MG/M2, QD, FOURTH CYCLE, CONCENTRATION: 100 MG
     Route: 041
     Dates: start: 20121008, end: 20121012
  8. DEPAKENE [Concomitant]
     Active Substance: VALPROIC ACID
     Dosage: DAILY DOSAGE UNKNOWN, FORMULATION: POR
     Route: 048
  9. PRIMPERAN [Concomitant]
     Active Substance: METOCLOPRAMIDE HYDROCHLORIDE
     Dosage: DAILY DOSAGE UNKNOWN
     Route: 042
     Dates: start: 20120910, end: 20120914
  10. TEMOZOLOMIDE. [Suspect]
     Active Substance: TEMOZOLOMIDE
     Dosage: 200 MG/M2, QD, THIRD CYCLE, CONCENTRATION 100 MG
     Route: 041
     Dates: start: 20120910, end: 20120914
  11. TEMOZOLOMIDE. [Suspect]
     Active Substance: TEMOZOLOMIDE
     Dosage: 200 MG/M2, QD, FIFTH CYCLE, CONCENTRATION: 100 MG
     Route: 041
     Dates: start: 20121105, end: 20121109
  12. CEFTAZIDIME. [Suspect]
     Active Substance: CEFTAZIDIME
     Indication: PNEUMONIA ASPIRATION
     Dosage: DAILY DOSE UNKNOWN
     Route: 041
     Dates: start: 20120912, end: 20120915
  13. MEROPEN [Suspect]
     Active Substance: MEROPENEM
     Indication: PNEUMONIA ASPIRATION
     Dosage: DAILY DOSAGE UNKNOWN
     Route: 041
     Dates: start: 20120915, end: 20120918
  14. TEMOZOLOMIDE. [Suspect]
     Active Substance: TEMOZOLOMIDE
     Dosage: 200 MG/M2, QD, SECOND CYCLE, CONCENTRATION: 100 MG
     Route: 041
     Dates: start: 20120813, end: 20120817
  15. TEGRETOL [Concomitant]
     Active Substance: CARBAMAZEPINE
     Dosage: DAILY DOSAGE UNKNOWN, FORMULATION: POR
     Route: 048
  16. GLYCEOL (FRUCTOSE (+) GLYCERIN (+) SODIUM CHLORIDE) [Concomitant]
     Active Substance: GLYCERIN
     Dosage: DAILY DOSAGE UNKNOWN
     Route: 041
     Dates: start: 20120514, end: 20121206
  17. PRIMPERAN [Concomitant]
     Active Substance: METOCLOPRAMIDE HYDROCHLORIDE
     Dosage: DAILY DOSAGE UNKNOWN
     Route: 042
     Dates: start: 20120813, end: 20120817
  18. PRIMPERAN [Concomitant]
     Active Substance: METOCLOPRAMIDE HYDROCHLORIDE
     Dosage: DAILY DOSAGE UNKNOWN
     Route: 042
     Dates: start: 20121008, end: 20121012

REACTIONS (19)
  - Generalised oedema [Not Recovered/Not Resolved]
  - Malnutrition [Not Recovered/Not Resolved]
  - C-reactive protein increased [Recovering/Resolving]
  - Pneumonia aspiration [Recovered/Resolved]
  - Pneumonia aspiration [Recovered/Resolved]
  - Hepatic function abnormal [Recovered/Resolved]
  - Lymphocyte count decreased [Not Recovered/Not Resolved]
  - Seizure [Not Recovered/Not Resolved]
  - Hypoalbuminaemia [Not Recovered/Not Resolved]
  - Blood urine present [Unknown]
  - Anaemia [Not Recovered/Not Resolved]
  - Hypochloraemia [Not Recovered/Not Resolved]
  - Leukocytosis [Recovering/Resolving]
  - Disease progression [Fatal]
  - Depressed level of consciousness [Not Recovered/Not Resolved]
  - Pneumonia [Not Recovered/Not Resolved]
  - Hypoproteinaemia [Not Recovered/Not Resolved]
  - Hyponatraemia [Not Recovered/Not Resolved]
  - Glucose urine [Unknown]

NARRATIVE: CASE EVENT DATE: 20120912
